FAERS Safety Report 10236288 (Version 1)
Quarter: 2014Q2

REPORT INFORMATION
  Report Type: Spontaneous
  Country: US (occurrence: None)
  Receive Date: 20140612
  Receipt Date: 20140612
  Transmission Date: 20141212
  Serious: Yes (Other)
  Sender: FDA-Public Use
  Company Number: None

PATIENT
  Sex: 0

DRUGS (1)
  1. HEPARIN 30000 UNITS/30ML APP [Suspect]
     Indication: ANTICOAGULANT THERAPY
     Dates: start: 20140610, end: 20140610

REACTIONS (1)
  - No therapeutic response [None]
